FAERS Safety Report 12707167 (Version 1)
Quarter: 2016Q3

REPORT INFORMATION
  Report Type: Spontaneous
  Country: US (occurrence: US)
  Receive Date: 20160901
  Receipt Date: 20160901
  Transmission Date: 20161109
  Serious: Yes (Hospitalization, Other)
  Sender: FDA-Public Use
  Company Number: US-PFIZER INC-2016407254

PATIENT
  Age: 66 Year
  Sex: Male
  Weight: 84 kg

DRUGS (1)
  1. GLIBENCLAMIDE [Suspect]
     Active Substance: GLYBURIDE
     Indication: BLOOD GLUCOSE ABNORMAL
     Dosage: UNK

REACTIONS (8)
  - Blindness [Unknown]
  - Renal injury [Unknown]
  - Coma [Unknown]
  - Drug hypersensitivity [Unknown]
  - Reaction to drug excipients [Unknown]
  - Throat tightness [Unknown]
  - Respiratory distress [Unknown]
  - Abasia [Unknown]

NARRATIVE: CASE EVENT DATE: 201606
